FAERS Safety Report 4677624-X (Version None)
Quarter: 2005Q2

REPORT INFORMATION
  Report Type: 
  Country: None (occurrence: None)
  Receive Date: 20050526
  Receipt Date: 20050526
  Transmission Date: 20051028
  Serious: Yes (Disabling)
  Sender: FDA-Public Use
  Company Number: None

PATIENT
  Age: 44 Year
  Sex: Male
  Weight: 95.2554 kg

DRUGS (2)
  1. GEODON [Suspect]
     Indication: BIPOLAR II DISORDER
     Dosage: 60 MG QD
     Dates: start: 20050218, end: 20050506
  2. LITHIUM CARBONATE [Concomitant]

REACTIONS (13)
  - ABNORMAL DREAMS [None]
  - ANOREXIA [None]
  - ANXIETY [None]
  - CHILLS [None]
  - DEPRESSED MOOD [None]
  - DIARRHOEA [None]
  - DISTURBANCE IN ATTENTION [None]
  - FEELING ABNORMAL [None]
  - HYPERHIDROSIS [None]
  - INSOMNIA [None]
  - SUICIDAL IDEATION [None]
  - THINKING ABNORMAL [None]
  - THIRST [None]
